FAERS Safety Report 7919687-1 (Version None)
Quarter: 2011Q4

REPORT INFORMATION
  Report Type: 
  Country: None (occurrence: None)
  Receive Date: 20111117
  Receipt Date: 20111114
  Transmission Date: 20120403
  Serious: Yes (Life-Threatening, Hospitalization, Other)
  Sender: FDA-Public Use
  Company Number: CH-JNJFOC-20111106036

PATIENT
  Age: 69 Year
  Sex: Female

DRUGS (3)
  1. DURAGESIC-100 [Suspect]
     Indication: PAIN
     Route: 062
  2. TARCEVA [Concomitant]
     Indication: NEOPLASM MALIGNANT
     Route: 048
  3. MORPHINE [Suspect]
     Indication: PAIN
     Route: 048

REACTIONS (6)
  - COMA [None]
  - ASTHENIA [None]
  - HYPERTENSION [None]
  - DEPRESSED LEVEL OF CONSCIOUSNESS [None]
  - SPEECH DISORDER [None]
  - DYSPHAGIA [None]
